FAERS Safety Report 8395126-4 (Version None)
Quarter: 2012Q2

REPORT INFORMATION
  Report Type: 
  Country: None (occurrence: None)
  Receive Date: 20120524
  Receipt Date: 20120514
  Transmission Date: 20120825
  Serious: Yes (Hospitalization, Other)
  Sender: FDA-Public Use
  Company Number: AUR-APL-2012-02269

PATIENT
  Age: 5 Year
  Sex: Male

DRUGS (8)
  1. LEVETIRACETAM [Suspect]
     Indication: PRODUCT USED FOR UNKNOWN INDICATION
  2. LAMOTRIGINE [Suspect]
     Indication: PRODUCT USED FOR UNKNOWN INDICATION
     Dosage: 200 MG (100 MG, 2 IN 1 D
  3. CLORAZEPATE DIPOTASSIUM [Concomitant]
  4. ARIPIPRAZOLE [Suspect]
     Indication: PRODUCT USED FOR UNKNOWN INDICATION
     Dosage: 2.5 MG, 5 MG, 2.5 MG, 10 MG (5 MG, 2 IN 1 D)
  5. DEXTROAMPHETAMINE [Suspect]
     Indication: PRODUCT USED FOR UNKNOWN INDICATION
  6. DIVALPROEX SODIUM [Suspect]
     Indication: CONVULSION
  7. DIVALPROEX SODIUM [Suspect]
     Indication: ABNORMAL BEHAVIOUR
  8. METHYLPHENIDATE HCL [Suspect]
     Indication: PRODUCT USED FOR UNKNOWN INDICATION

REACTIONS (23)
  - ATAXIA [None]
  - AREFLEXIA [None]
  - HYPOTONIA [None]
  - ALTERED VISUAL DEPTH PERCEPTION [None]
  - RASH [None]
  - CEREBRAL CYST [None]
  - HYPERSEXUALITY [None]
  - MOVEMENT DISORDER [None]
  - NEUROLOGICAL SYMPTOM [None]
  - CONVULSION [None]
  - ABNORMAL BEHAVIOUR [None]
  - MUSCULAR WEAKNESS [None]
  - ELECTROMYOGRAM ABNORMAL [None]
  - MOTOR DYSFUNCTION [None]
  - AGGRESSION [None]
  - ANXIETY [None]
  - PSYCHOMOTOR HYPERACTIVITY [None]
  - OPPOSITIONAL DEFIANT DISORDER [None]
  - CONDITION AGGRAVATED [None]
  - AFFECT LABILITY [None]
  - COORDINATION ABNORMAL [None]
  - THROMBOCYTOPENIA [None]
  - GAIT DISTURBANCE [None]
